FAERS Safety Report 4826148-5 (Version None)
Quarter: 2005Q4

REPORT INFORMATION
  Report Type: 
  Country: None (occurrence: None)
  Receive Date: 20051111
  Receipt Date: 20051109
  Transmission Date: 20060501
  Serious: Yes (Other)
  Sender: FDA-Public Use
  Company Number: 200514102EU

PATIENT
  Age: 43 Year
  Sex: Female

DRUGS (1)
  1. NICORETTE (MINT) [Suspect]
     Indication: NICOTINE DEPENDENCE
     Route: 002
     Dates: start: 20010101

REACTIONS (3)
  - CRYING [None]
  - DEPENDENCE [None]
  - MEDICATION ERROR [None]
